FAERS Safety Report 14759066 (Version 2)
Quarter: 2019Q1

REPORT INFORMATION
  Report Type: Spontaneous
  Country: DE (occurrence: DE)
  Receive Date: 20180413
  Receipt Date: 20190121
  Transmission Date: 20190417
  Serious: Yes (Hospitalization, Other)
  Sender: FDA-Public Use
  Company Number: PHHY2018DE064962

PATIENT
  Age: 4 Week
  Sex: Male
  Weight: 3.31 kg

DRUGS (3)
  1. ACICLOVIR 1A PHARMA [Suspect]
     Active Substance: ACYCLOVIR
     Dosage: MATERNAL DOSE: 5 UG/LITRE QD
     Route: 064
     Dates: start: 20171010, end: 20171017
  2. L-THYROXIN [Concomitant]
     Active Substance: LEVOTHYROXINE SODIUM
     Indication: FOETAL EXPOSURE DURING PREGNANCY
     Dosage: 25 UG, QD
     Route: 065
     Dates: start: 201701, end: 201712
  3. ACICLOVIR 1A PHARMA [Suspect]
     Active Substance: ACYCLOVIR
     Indication: FOETAL EXPOSURE DURING PREGNANCY
     Dosage: MATERNAL DOSE: 800 MG
     Route: 064

REACTIONS (3)
  - Intestinal haemorrhage [Unknown]
  - Diarrhoea [Recovered/Resolved]
  - Haematochezia [Recovered/Resolved]

NARRATIVE: CASE EVENT DATE: 201712
